FAERS Safety Report 6734167-7 (Version None)
Quarter: 2010Q2

REPORT INFORMATION
  Report Type: 
  Country: None (occurrence: None)
  Receive Date: 20100520
  Receipt Date: 20100512
  Transmission Date: 20101027
  Serious: Yes (Hospitalization)
  Sender: FDA-Public Use
  Company Number: GXKR2010CA05368

PATIENT
  Age: 2 Year
  Sex: Male

DRUGS (1)
  1. GLIBENCLAMIDE (NGX) [Suspect]
     Dosage: 10 DF, ONCE/SINGLE
     Route: 048

REACTIONS (5)
  - ACCIDENTAL EXPOSURE [None]
  - ACCIDENTAL OVERDOSE [None]
  - HYPOGLYCAEMIA [None]
  - IRRITABILITY [None]
  - SOMNOLENCE [None]
